FAERS Safety Report 16761194 (Version 1)
Quarter: 2019Q3

REPORT INFORMATION
  Report Type: Spontaneous
  Country: US (occurrence: US)
  Receive Date: 20190830
  Receipt Date: 20190830
  Transmission Date: 20191005
  Serious: No
  Sender: FDA-Public Use
  Company Number: US-ANIPHARMA-2019-US-005507

PATIENT
  Sex: Female

DRUGS (1)
  1. ARIMIDEX [Suspect]
     Active Substance: ANASTROZOLE
     Indication: PRODUCT USED FOR UNKNOWN INDICATION
     Dosage: 1 TABLET/DAY
     Route: 048
     Dates: end: 20190318

REACTIONS (5)
  - Nausea [Recovered/Resolved]
  - Vomiting [Recovering/Resolving]
  - Anxiety [Recovering/Resolving]
  - Migraine [Recovered/Resolved]
  - Lethargy [Recovering/Resolving]
